FAERS Safety Report 17866021 (Version 2)
Quarter: 2020Q2

REPORT INFORMATION
  Report Type: Spontaneous
  Country: GB (occurrence: GB)
  Receive Date: 20200605
  Receipt Date: 20200626
  Transmission Date: 20200714
  Serious: Yes (Life-Threatening, Other)
  Sender: FDA-Public Use
  Company Number: GB-MYLANLABS-2020M1054554

PATIENT
  Age: 18 Year
  Sex: Female
  Weight: 57 kg

DRUGS (6)
  1. SUMATRIPTAN. [Suspect]
     Active Substance: SUMATRIPTAN
     Indication: MIGRAINE
     Dosage: ONE AS SOON AS POSSIBLE AFTER ONSET.. DOSE CAN BE REPEATED AFTER 2 HOURS.
     Route: 048
     Dates: start: 20200512
  2. IBUPROFEN. [Concomitant]
     Active Substance: IBUPROFEN
     Dosage: 3 EVERY DAY FOR ACUTE ATTACK MAX 6 PER DAY
     Dates: start: 20200512
  3. ADAPALENE. [Concomitant]
     Active Substance: ADAPALENE
     Indication: ACNE
     Dosage: 1 DOSAGE FORM, QD (APPLY AT NIGHT )
     Dates: start: 20200318
  4. CETRABEN                           /01690401/ [Concomitant]
     Dosage: UNK, PRN (UP TO THREE TIMES A DAY)
     Dates: start: 20200221
  5. LUCETTE [Concomitant]
     Active Substance: DROSPIRENONE\ETHINYL ESTRADIOL
     Dosage: FOR 21 DAYS FOLLOWED BY 7 TABLET FREE DAYS, 0.03MG/3MG
     Dates: start: 20200423
  6. ZINERYT [Concomitant]
     Indication: ACNE
     Dosage: TO BE APPLIED ONCE OR TWICE A DAY
     Dates: start: 20200318

REACTIONS (2)
  - Swelling [Recovered/Resolved]
  - Pharyngeal swelling [Recovered/Resolved]

NARRATIVE: CASE EVENT DATE: 20200514
